FAERS Safety Report 7072942-2 (Version None)
Quarter: 2010Q4

REPORT INFORMATION
  Report Type: 
  Country: None (occurrence: None)
  Receive Date: 20101021
  Receipt Date: 20101008
  Transmission Date: 20110411
  Serious: Yes (Hospitalization)
  Sender: FDA-Public Use
  Company Number: PI-04976

PATIENT
  Sex: Female

DRUGS (2)
  1. CHLORAPREP WITH TINT [Suspect]
     Indication: POSTOPERATIVE CARE
     Dosage: 26 ML, ONCE, TOPICAL
     Route: 061
     Dates: start: 20100803
  2. CHLORAPREP WITH TINT [Suspect]
     Indication: THERAPEUTIC SKIN CARE TOPICAL
     Dosage: 26 ML, ONCE, TOPICAL
     Route: 061
     Dates: start: 20100803

REACTIONS (7)
  - APPLICATION SITE DISCHARGE [None]
  - APPLICATION SITE PRURITUS [None]
  - INCISION SITE COMPLICATION [None]
  - SCAR [None]
  - SKIN REACTION [None]
  - STAPHYLOCOCCAL INFECTION [None]
  - WOUND SECRETION [None]
